FAERS Safety Report 14510430 (Version 4)
Quarter: 2018Q2

REPORT INFORMATION
  Report Type: Spontaneous
  Country: RO (occurrence: RO)
  Receive Date: 20180209
  Receipt Date: 20180421
  Transmission Date: 20180711
  Serious: Yes (Hospitalization, Other)
  Sender: FDA-Public Use
  Company Number: RO-AUROBINDO-AUR-APL-2018-005703

PATIENT
  Age: 16 Year
  Sex: Female
  Weight: 60 kg

DRUGS (5)
  1. INSULIN [Concomitant]
     Active Substance: INSULIN NOS
     Dosage: UNK ()
     Route: 065
  2. ABACAVIR+LAMIVUDINE FILM COATED TABLET [Suspect]
     Active Substance: ABACAVIR\LAMIVUDINE
     Indication: HIV INFECTION
     Dosage: UNK
     Route: 065
     Dates: start: 20151001, end: 2016
  3. INSULIN [Concomitant]
     Active Substance: INSULIN NOS
     Dosage: UNK ()
     Route: 065
  4. INSULIN [Concomitant]
     Active Substance: INSULIN NOS
     Indication: TYPE 1 DIABETES MELLITUS
     Dosage: UNK
     Route: 065
  5. ISENTRESS [Suspect]
     Active Substance: RALTEGRAVIR POTASSIUM
     Indication: ANTIRETROVIRAL THERAPY
     Dosage: UNK ()
     Route: 065
     Dates: start: 20151001, end: 2016

REACTIONS (8)
  - Urinary tract infection [Unknown]
  - Caesarean section [Unknown]
  - Exposure during pregnancy [Unknown]
  - Metabolic disorder [Unknown]
  - Premature delivery [Unknown]
  - Ketoacidosis [Unknown]
  - Diabetic ketoacidosis [Unknown]
  - Live birth [Unknown]

NARRATIVE: CASE EVENT DATE: 2016
